FAERS Safety Report 10264642 (Version 2)
Quarter: 2014Q2

REPORT INFORMATION
  Report Type: Other
  Country: JP (occurrence: JP)
  Receive Date: 20140627
  Receipt Date: 20140627
  Transmission Date: 20141212
  Serious: No
  Sender: FDA-Public Use
  Company Number: JP-DSJP-DSJ-2014-02646

PATIENT
  Age: 49 Year
  Sex: Male
  Weight: 96 kg

DRUGS (4)
  1. OLMETEC TABLETS 20MG [Suspect]
     Indication: HYPERTENSION
     Dosage: 40 MG, QD
     Route: 048
     Dates: start: 20140101, end: 20140115
  2. OLMETEC TABLETS 20MG [Suspect]
     Dosage: 20 MG, QD
     Route: 048
     Dates: start: 20140116, end: 20140124
  3. PLAVIX                             /01220701/ [Concomitant]
     Dosage: UNK
     Route: 048
  4. AMLODIN [Concomitant]
     Dosage: UNK
     Route: 048

REACTIONS (1)
  - Renal disorder [Recovered/Resolved]
